FAERS Safety Report 6296479-3 (Version None)
Quarter: 2009Q3

REPORT INFORMATION
  Report Type: 
  Country: None (occurrence: None)
  Receive Date: 20090804
  Receipt Date: 20090728
  Transmission Date: 20100115
  Serious: Yes (Other)
  Sender: FDA-Public Use
  Company Number: A0799118A

PATIENT
  Age: 89 Year
  Sex: Female

DRUGS (5)
  1. FLOVENT [Suspect]
     Indication: ASTHMA
     Dosage: 1PUFF PER DAY
     Route: 055
     Dates: start: 19990101
  2. NASACORT [Suspect]
     Dosage: 1SPR PER DAY
     Dates: start: 19990101
  3. THYROID TAB [Concomitant]
  4. LABETALOL HCL [Concomitant]
  5. ASCORBIC ACID [Concomitant]

REACTIONS (6)
  - ADRENAL DISORDER [None]
  - ASTHENIA [None]
  - CATARACT [None]
  - HYPERTENSION [None]
  - MACULAR DEGENERATION [None]
  - VISUAL IMPAIRMENT [None]
